FAERS Safety Report 21925575 (Version 1)
Quarter: 2023Q1

REPORT INFORMATION
  Report Type: Spontaneous
  Country: US (occurrence: US)
  Receive Date: 20230130
  Receipt Date: 20230130
  Transmission Date: 20230418
  Serious: No
  Sender: FDA-Public Use
  Company Number: US-SA-SAC20230127000233

PATIENT
  Age: 60 Year

DRUGS (1)
  1. MULTAQ [Suspect]
     Active Substance: DRONEDARONE
     Indication: Atrial fibrillation
     Dosage: UNK, BID, (WITH MEALS)
     Route: 065
     Dates: start: 2014

REACTIONS (1)
  - Product dose omission issue [Unknown]
